FAERS Safety Report 8115898-3 (Version None)
Quarter: 2012Q1

REPORT INFORMATION
  Report Type: 
  Country: None (occurrence: None)
  Receive Date: 20120206
  Receipt Date: 20120130
  Transmission Date: 20120608
  Serious: Yes (Hospitalization)
  Sender: FDA-Public Use
  Company Number: CN-BRISTOL-MYERS SQUIBB COMPANY-16363145

PATIENT
  Age: 69 Year
  Sex: Male

DRUGS (3)
  1. PLATINUM [Concomitant]
     Indication: LUNG NEOPLASM MALIGNANT
  2. PACLITAXEL [Concomitant]
     Indication: LUNG NEOPLASM MALIGNANT
  3. ERBITUX [Suspect]
     Indication: LUNG NEOPLASM MALIGNANT
     Dosage: 85.7143MG(600MG):06JAN2012-06JAN2012 400MG:13JAN2012-13JAN2012.
     Route: 042
     Dates: start: 20120106, end: 20120113

REACTIONS (1)
  - CEREBRAL INFARCTION [None]
